FAERS Safety Report 5699538-9 (Version None)
Quarter: 2008Q2

REPORT INFORMATION
  Report Type: 
  Country: None (occurrence: None)
  Receive Date: 20080410
  Receipt Date: 20080402
  Transmission Date: 20081010
  Serious: Yes (Other)
  Sender: FDA-Public Use
  Company Number: AU-ABBOTT-08P-008-0445199-00

PATIENT
  Sex: Male

DRUGS (2)
  1. RITONAVIR [Suspect]
     Indication: HIV INFECTION
  2. SCH532706 [Suspect]
     Indication: HIV INFECTION

REACTIONS (1)
  - PERICARDITIS [None]
